FAERS Safety Report 17638974 (Version 2)
Quarter: 2020Q2

REPORT INFORMATION
  Report Type: Spontaneous
  Country: US (occurrence: US)
  Receive Date: 20200407
  Receipt Date: 20200625
  Transmission Date: 20200713
  Serious: No
  Sender: FDA-Public Use
  Company Number: US-SHIRE-US202012630

PATIENT
  Sex: Female
  Weight: 46.71 kg

DRUGS (3)
  1. OMEPRAZOLE. [Concomitant]
     Active Substance: OMEPRAZOLE
     Indication: GASTROINTESTINAL MOTILITY DISORDER
  2. MOTEGRITY [Suspect]
     Active Substance: PRUCALOPRIDE SUCCINATE
     Indication: GASTROINTESTINAL MOTILITY DISORDER
     Dosage: 2 MILLIGRAM, 1X/DAY:QD
     Route: 048
     Dates: start: 201910, end: 2020
  3. MOTEGRITY [Suspect]
     Active Substance: PRUCALOPRIDE SUCCINATE
     Dosage: 1 MILLIGRAM, 1X/DAY:QD
     Route: 048
     Dates: start: 2020

REACTIONS (7)
  - Arthralgia [Unknown]
  - Blood iron decreased [Recovering/Resolving]
  - Pituitary tumour benign [Unknown]
  - Blood growth hormone increased [Unknown]
  - Intentional product use issue [Unknown]
  - Malaise [Unknown]
  - Menstrual disorder [Unknown]
